FAERS Safety Report 6288496-4 (Version None)
Quarter: 2009Q3

REPORT INFORMATION
  Report Type: 
  Country: None (occurrence: None)
  Receive Date: 20090727
  Receipt Date: 20070314
  Transmission Date: 20100115
  Serious: Yes (Other)
  Sender: FDA-Public Use
  Company Number: FR-GUERBET-20070028

PATIENT
  Sex: Male

DRUGS (1)
  1. HEXABRIX [Suspect]
     Dosage: 100, MILLILITRE(S0)
     Dates: start: 20070227

REACTIONS (3)
  - HYPERSENSITIVITY [None]
  - HYPOTENSION [None]
  - SNEEZING [None]
